FAERS Safety Report 11592387 (Version 1)
Quarter: 2015Q4

REPORT INFORMATION
  Report Type: Spontaneous
  Country: US (occurrence: US)
  Receive Date: 20151005
  Receipt Date: 20151005
  Transmission Date: 20160304
  Serious: Yes (Hospitalization)
  Sender: FDA-Public Use
  Company Number: US-TEVA-598127USA

PATIENT
  Sex: Female

DRUGS (4)
  1. COPAXONE [Suspect]
     Active Substance: GLATIRAMER ACETATE
     Indication: MULTIPLE SCLEROSIS
     Dates: start: 2007
  2. COPAXONE [Suspect]
     Active Substance: GLATIRAMER ACETATE
     Dates: start: 201501
  3. BACLOFEN. [Suspect]
     Active Substance: BACLOFEN
     Route: 065
  4. INSULIN [Concomitant]
     Active Substance: INSULIN NOS
     Indication: BLOOD GLUCOSE INCREASED

REACTIONS (27)
  - Gait disturbance [Unknown]
  - Jaw disorder [Unknown]
  - Malaise [Unknown]
  - Trismus [Unknown]
  - Blood glucose increased [Unknown]
  - Pruritus [Unknown]
  - Headache [Unknown]
  - Pain in jaw [Unknown]
  - Dry mouth [Unknown]
  - Chest discomfort [Recovered/Resolved]
  - Dyspnoea [Unknown]
  - Palpitations [Unknown]
  - Dyspnoea [Unknown]
  - Pruritus [Unknown]
  - Dizziness [Unknown]
  - Drug prescribing error [Unknown]
  - Tremor [Recovered/Resolved]
  - Pain [Unknown]
  - Drug effect increased [Unknown]
  - Chills [Not Recovered/Not Resolved]
  - Gait disturbance [Unknown]
  - Diarrhoea [Unknown]
  - Headache [Unknown]
  - Limb discomfort [Unknown]
  - Trismus [Recovered/Resolved]
  - Asthenia [Recovered/Resolved]
  - Influenza like illness [Unknown]

NARRATIVE: CASE EVENT DATE: 2007
